FAERS Safety Report 9434298 (Version 2)
Quarter: 2013Q3

REPORT INFORMATION
  Report Type: Spontaneous
  Country: US (occurrence: US)
  Receive Date: 20130801
  Receipt Date: 20130906
  Transmission Date: 20140515
  Serious: Yes (Hospitalization, Other)
  Sender: FDA-Public Use
  Company Number: US-ELI_LILLY_AND_COMPANY-US201307008086

PATIENT
  Age: 72 Year
  Sex: Female

DRUGS (3)
  1. CYMBALTA [Suspect]
     Indication: FIBROMYALGIA
     Dosage: 60 MG, EACH EVENING
     Route: 065
     Dates: start: 2009
  2. CYMBALTA [Suspect]
     Indication: ARTHRITIS
  3. TYLENOL                            /00020001/ [Concomitant]
     Indication: PAIN
     Dosage: UNK, UNKNOWN

REACTIONS (6)
  - Cardiac disorder [Recovered/Resolved]
  - Volvulus [Unknown]
  - Inner ear disorder [Unknown]
  - Vertigo [Unknown]
  - Dizziness [Unknown]
  - Postoperative adhesion [Recovering/Resolving]
